FAERS Safety Report 9796399 (Version 1)
Quarter: 2014Q1

REPORT INFORMATION
  Report Type: Spontaneous
  Country: GB (occurrence: GB)
  Receive Date: 20140103
  Receipt Date: 20140103
  Transmission Date: 20141002
  Serious: Yes (Other)
  Sender: FDA-Public Use
  Company Number: GB-TEVA-452722ISR

PATIENT
  Age: 74 Year
  Sex: Female
  Weight: 80 kg

DRUGS (6)
  1. PREDNISOLONE [Suspect]
     Indication: COLITIS
     Route: 048
     Dates: start: 20131017, end: 201311
  2. WARFARIN [Concomitant]
     Indication: ATRIAL FIBRILLATION
     Dosage: AS PER INR. LONG TERM PRESCRIPTION. NO ISSUES BEFORE. ONGOING.
     Route: 048
  3. BISOPROLOL [Concomitant]
     Indication: ATRIAL FIBRILLATION
     Dosage: 10 MILLIGRAM DAILY; LONG TERM PRESCRIPTION. NO ISSUES BEFORE. ONGOING.
     Route: 048
  4. FUROSEMIDE [Concomitant]
     Indication: ESSENTIAL HYPERTENSION
     Dosage: LONG TERM PRESCRIPTION. NO ISSUES BEFORE. ONGOING.
     Route: 048
  5. DOXAZOSIN [Concomitant]
     Indication: ESSENTIAL HYPERTENSION
     Dosage: LONG TERM PRESCRIPTION. NO ISSUES BEFORE. ONGOING. ONE IN THE MORNING.
     Route: 048
  6. ENALAPRIL [Concomitant]
     Indication: ESSENTIAL HYPERTENSION
     Dosage: 20 MILLIGRAM DAILY; LONG TERM PRESCRIPTION. NO ISSUES BEFORE. ONGOING. ONE IN THE MORNING.
     Route: 048

REACTIONS (1)
  - Syncope [Recovered/Resolved]
